FAERS Safety Report 19572660 (Version 2)
Quarter: 2024Q4

REPORT INFORMATION
  Report Type: Report from Study
  Country: AT (occurrence: AT)
  Receive Date: 20210716
  Receipt Date: 20241004
  Transmission Date: 20250115
  Serious: Yes (Hospitalization)
  Sender: PFIZER
  Company Number: AT-CELLTRION HEALTHCARE HUNGARY KFT-2018AT025435

PATIENT
  Age: 78 Year
  Sex: Female

DRUGS (22)
  1. PACLITAXEL [Suspect]
     Active Substance: PACLITAXEL
     Indication: Breast cancer
     Dosage: 113.69 MG, EVERY WEEK
     Route: 042
     Dates: start: 20180810, end: 20180914
  2. TRASTUZUMAB [Suspect]
     Active Substance: TRASTUZUMAB
     Indication: HER2 positive breast cancer
     Dosage: 384 MG (384 MG, EVERY 3 WEEKS (MOST RECENT DOSE PRIOR TO THE EVENT: 09/NOV/2018)
     Route: 042
     Dates: start: 20180810, end: 20180810
  3. LETROZOLE [Suspect]
     Active Substance: LETROZOLE
     Indication: Breast cancer
     Dosage: 2.5 MG (QD)
     Route: 048
     Dates: start: 20181029, end: 20190613
  4. PACLITAXEL [Suspect]
     Active Substance: PACLITAXEL
     Indication: Breast cancer
     Dosage: 142.11 MG, WEEKLY (142.11 MG, EVERY WEEK (MOST RECENT DOSE PRIOR TO THE EVENT: 19/OCT/2018) )
     Route: 042
     Dates: start: 20181005
  5. PACLITAXEL [Suspect]
     Active Substance: PACLITAXEL
     Dosage: 142.11 MG, WEEKLY
     Route: 042
     Dates: start: 20180928
  6. PERTUZUMAB [Suspect]
     Active Substance: PERTUZUMAB
     Indication: Breast cancer
     Dosage: 840 MG, EVERY 3 WEEKS ((DOSAGE TEXT: MOST RECENT DOSE PRIOR TO THE EVENT: 31/AUG/2018)   )
     Route: 042
     Dates: start: 20180810, end: 20180810
  7. MEFENAMIC ACID [Concomitant]
     Active Substance: MEFENAMIC ACID
     Indication: Arthralgia
     Dosage: UNK
     Dates: start: 20180914
  8. MEFENAMIC ACID [Concomitant]
     Active Substance: MEFENAMIC ACID
     Dosage: UNK
     Dates: start: 20181019
  9. MEFENAMIC ACID [Concomitant]
     Active Substance: MEFENAMIC ACID
     Dosage: UNK
     Dates: start: 20190615
  10. LOPERAMIDE HYDROCHLORIDE [Concomitant]
     Active Substance: LOPERAMIDE HYDROCHLORIDE
     Indication: Diarrhoea
     Dates: start: 20181012, end: 20181116
  11. LOPERAMIDE HYDROCHLORIDE [Concomitant]
     Active Substance: LOPERAMIDE HYDROCHLORIDE
     Dosage: UNK
     Dates: start: 20181127
  12. LORAZEPAM [Concomitant]
     Active Substance: LORAZEPAM
     Dosage: ONGOING = CHECKED
  13. TRAZODONE HYDROCHLORIDE [Concomitant]
     Active Substance: TRAZODONE HYDROCHLORIDE
  14. CAPHOSOL [CALCIUM CHLORIDE;SODIUM CHLORIDE;SODIUM PHOSPHATE DIBASIC;SO [Concomitant]
     Indication: Mucosal inflammation
     Dosage: ONGOING = NOT CHECKED.
     Dates: start: 20180615, end: 20180921
  15. AMLODIPINE BESYLATE [Concomitant]
     Active Substance: AMLODIPINE BESYLATE
     Indication: Hypertension
     Dosage: ONGOING = NOT CHECKED
     Dates: start: 20180810, end: 20190615
  16. VITAMINS WITH MINERALS [Concomitant]
     Active Substance: MINERALS\VITAMINS
     Dosage: UNK
     Dates: start: 20180817, end: 20190615
  17. KYTRIL [Concomitant]
     Active Substance: GRANISETRON HYDROCHLORIDE
     Dates: start: 20180928, end: 20181019
  18. ANTIFLAT [Concomitant]
     Dosage: UNK
     Dates: start: 20181126
  19. MYCOSTATIN [Concomitant]
     Active Substance: NYSTATIN
     Indication: Mucosal inflammation
     Dosage: ONGOING = NOT CHECKED
     Dates: start: 20190615, end: 20190819
  20. MESALAMINE [Concomitant]
     Active Substance: MESALAMINE
     Dosage: ONGOING = CHECKED
  21. ZOFRAN [Concomitant]
     Active Substance: ONDANSETRON HYDROCHLORIDE
     Indication: Nausea
     Dates: start: 20180907
  22. XGEVA [Concomitant]
     Active Substance: DENOSUMAB
     Dosage: UNK
     Dates: start: 20180817

REACTIONS (2)
  - Gastroenteritis radiation [Recovered/Resolved]
  - Abdominal pain upper [Not Recovered/Not Resolved]

NARRATIVE: CASE EVENT DATE: 20181109
